FAERS Safety Report 10069705 (Version 1)
Quarter: 2014Q2

REPORT INFORMATION
  Report Type: Spontaneous
  Country: US (occurrence: None)
  Receive Date: 20140409
  Receipt Date: 20140409
  Transmission Date: 20141212
  Serious: Yes (Life-Threatening, Hospitalization, Disabling)
  Sender: FDA-Public Use
  Company Number: None

PATIENT
  Age: 45 Year
  Sex: Female
  Weight: 79.38 kg

DRUGS (2)
  1. EMOQUETTE [Suspect]
     Indication: HORMONE THERAPY
     Dosage: 1 PILL, ONCE DAILY
     Dates: start: 20130708, end: 20130927
  2. EMOQUETTE [Suspect]
     Indication: OVARIAN CYST
     Dosage: 1 PILL, ONCE DAILY
     Dates: start: 20130708, end: 20130927

REACTIONS (3)
  - Embolism [None]
  - Thrombosis [None]
  - Musculoskeletal chest pain [None]
